FAERS Safety Report 8611101-6 (Version None)
Quarter: 2012Q3

REPORT INFORMATION
  Report Type: 
  Country: None (occurrence: None)
  Receive Date: 20120808
  Receipt Date: 20120726
  Transmission Date: 20120928
  Serious: Yes (Hospitalization)
  Sender: FDA-Public Use
  Company Number: AUR-APL-2012-03256

PATIENT
  Age: 76 Year
  Sex: Male

DRUGS (8)
  1. SERTRALINE HYDROCHLORIDE [Suspect]
     Indication: DEPRESSION
     Dosage: (50 MG), ORAL
     Route: 048
     Dates: start: 20111101, end: 20120101
  2. LEVOTHYROXINE SODIUM [Concomitant]
  3. AMLODIPINE [Concomitant]
  4. OMEPRAZOLE [Concomitant]
  5. CITALOPRAM HYDROBROMIDE [Suspect]
     Indication: DEPRESSION
     Dosage: (10 MG), ORAL; (20 MG), ORAL
     Route: 048
     Dates: start: 20120501, end: 20120101
  6. CITALOPRAM HYDROBROMIDE [Suspect]
     Indication: DEPRESSION
     Dosage: (10 MG), ORAL; (20 MG), ORAL
     Route: 048
     Dates: start: 20120101
  7. BISOPROLOL FUMARATE [Concomitant]
  8. CANDESARTAN CILEXETIL [Concomitant]

REACTIONS (4)
  - PNEUMONIA [None]
  - ALVEOLITIS [None]
  - NO THERAPEUTIC RESPONSE [None]
  - PULMONARY FIBROSIS [None]
